FAERS Safety Report 5852778-8 (Version None)
Quarter: 2008Q3

REPORT INFORMATION
  Report Type: 
  Country: None (occurrence: None)
  Receive Date: 20080819
  Receipt Date: 20080806
  Transmission Date: 20090109
  Serious: Yes (Hospitalization)
  Sender: FDA-Public Use
  Company Number: CERZ-1000329

PATIENT
  Age: 9 Year
  Sex: Female
  Weight: 18 kg

DRUGS (7)
  1. CEREZYME [Suspect]
     Indication: GAUCHER'S DISEASE
     Dosage: 45-50 U, Q2W, INTRAVENOUS
     Route: 042
     Dates: start: 20050114
  2. VITAMIN C (ASCORBIC ACID) TABLET [Concomitant]
  3. LINEX (LACTOBACILLUS ACIDOPHILUS) TABLET [Concomitant]
  4. KETOTIFEN (KETOTIFEN) TABLET [Concomitant]
  5. MEGASEF (CEFRADINE) [Concomitant]
  6. DIFLUCAN [Concomitant]
  7. BROMEKSIN (BROMHEXINE HYDROCHLORIDE) [Concomitant]

REACTIONS (1)
  - MEDIASTINUM NEOPLASM [None]
